FAERS Safety Report 8342060-1 (Version None)
Quarter: 2012Q2

REPORT INFORMATION
  Report Type: 
  Country: None (occurrence: None)
  Receive Date: 20120507
  Receipt Date: 20120430
  Transmission Date: 20120825
  Serious: Yes (Death, Hospitalization, Other)
  Sender: FDA-Public Use
  Company Number: US-TEVA-336426USA

PATIENT
  Age: 61 Year
  Sex: Female
  Weight: 56.7 kg

DRUGS (2)
  1. CYTARABINE [Suspect]
     Dates: start: 20120314
  2. DAUNORUBICIN HYDROCHLORIDE [Suspect]
     Dates: start: 20120316

REACTIONS (4)
  - RESPIRATORY FAILURE [None]
  - FEBRILE NEUTROPENIA [None]
  - PNEUMONIA [None]
  - SEPSIS [None]
